FAERS Safety Report 8733724 (Version 2)
Quarter: 2012Q4

REPORT INFORMATION
  Report Type: 
  Country: US (occurrence: US)
  Receive Date: 20120821
  Receipt Date: 20121203
  Transmission Date: 20130627
  Serious: Yes (Hospitalization, Other)
  Sender: FDA-Public Use
  Company Number: US-BAYER-2012-083206

PATIENT
  Age: 24 Year
  Sex: Female
  Weight: 74.83 kg

DRUGS (7)
  1. YAZ [Suspect]
     Indication: CONTRACEPTION
     Dosage: UNK
     Dates: start: 2005
  2. YAZ [Suspect]
     Indication: CONTRACEPTION
     Dosage: UNK
     Dates: start: 200905, end: 201101
  3. YASMIN [Suspect]
     Indication: CONTRACEPTION
     Dosage: UNK
     Dates: start: 200502, end: 200904
  4. BEYAZ [Suspect]
     Indication: CONTRACEPTION
     Dosage: UNK
     Dates: start: 201102, end: 201205
  5. EFFEXOR [Concomitant]
     Dosage: UNK
     Dates: start: 200501
  6. ALPRAZOLAM [Concomitant]
     Dosage: UNK
     Dates: start: 200501
  7. TOPAMAX [Concomitant]
     Dosage: UNK
     Dates: start: 200510

REACTIONS (6)
  - Cholecystitis [None]
  - Biliary dyskinesia [None]
  - Injury [None]
  - Pain [None]
  - Emotional distress [None]
  - Abdominal pain [None]
